FAERS Safety Report 24704500 (Version 1)
Quarter: 2024Q4

REPORT INFORMATION
  Report Type: Report from Study
  Country: IT (occurrence: IT)
  Receive Date: 20241206
  Receipt Date: 20241206
  Transmission Date: 20250115
  Serious: Yes (Other)
  Sender: AUROBINDO
  Company Number: IT-SANDOZ-SDZ2024IT091475

PATIENT
  Age: 50 Year
  Sex: Female

DRUGS (2)
  1. IMATINIB [Suspect]
     Active Substance: IMATINIB
     Indication: Gastrointestinal stromal tumour
     Dosage: 400 MILLIGRAM, ONCE A DAY
     Route: 048
  2. IMATINIB [Suspect]
     Active Substance: IMATINIB
     Indication: Metastasis

REACTIONS (5)
  - Toxicity to various agents [Recovered/Resolved]
  - Muscle spasms [Recovered/Resolved]
  - Drug level increased [Recovered/Resolved]
  - Drug-disease interaction [Unknown]
  - Periorbital oedema [Recovered/Resolved]
